FAERS Safety Report 4712055-5 (Version None)
Quarter: 2005Q3

REPORT INFORMATION
  Report Type: 
  Country: None (occurrence: None)
  Receive Date: 20050712
  Receipt Date: 20050701
  Transmission Date: 20060218
  Serious: Yes (Other)
  Sender: FDA-Public Use
  Company Number: BR-JNJFOC-20050700732

PATIENT
  Age: 2 Year
  Sex: Female

DRUGS (1)
  1. HALDOL [Suspect]

REACTIONS (6)
  - ACCIDENTAL EXPOSURE [None]
  - CONVULSION [None]
  - CYANOSIS [None]
  - EXTRAPYRAMIDAL DISORDER [None]
  - HYPOTONIA [None]
  - SOMNOLENCE [None]
